FAERS Safety Report 9229662 (Version 3)
Quarter: 2013Q2

REPORT INFORMATION
  Report Type: Spontaneous
  Country: US (occurrence: US)
  Receive Date: 20130415
  Receipt Date: 20130515
  Transmission Date: 20140414
  Serious: Yes (Other)
  Sender: FDA-Public Use
  Company Number: US-009507513-1304USA005029

PATIENT
  Age: 20 Year
  Sex: Female
  Weight: 53.97 kg

DRUGS (1)
  1. IMPLANON [Suspect]
     Indication: CONTRACEPTION
     Dosage: 1 DF, UNK
     Route: 059
     Dates: start: 20130212

REACTIONS (3)
  - Abortion spontaneous [Recovering/Resolving]
  - Unintended pregnancy [Recovered/Resolved]
  - Inappropriate schedule of drug administration [Unknown]
